FAERS Safety Report 10227106 (Version 3)
Quarter: 2015Q1

REPORT INFORMATION
  Report Type: Spontaneous
  Country: JP (occurrence: JP)
  Receive Date: 20140610
  Receipt Date: 20150101
  Transmission Date: 20150720
  Serious: Yes (Hospitalization)
  Sender: FDA-Public Use
  Company Number: JP-ROCHE-1384329

PATIENT
  Age: 68 Year
  Sex: Female
  Weight: 46 kg

DRUGS (11)
  1. TEPRENONE [Concomitant]
     Active Substance: TEPRENONE
     Indication: GASTRITIS PROPHYLAXIS
     Route: 048
     Dates: start: 20140318
  2. DOCETAXEL. [Concomitant]
     Active Substance: DOCETAXEL
     Indication: BREAST CANCER RECURRENT
     Dosage: DOSAGE IS UNCERTAIN
     Route: 041
  3. PERJETA [Suspect]
     Active Substance: PERTUZUMAB
     Indication: BREAST CANCER RECURRENT
     Dosage: 420MG/14 ML
     Route: 041
     Dates: start: 20140326, end: 20140326
  4. CALONAL [Concomitant]
     Active Substance: ACETAMINOPHEN
     Indication: BREAST CANCER
     Route: 048
     Dates: start: 20140312
  5. PICOBEN [Concomitant]
     Indication: CONSTIPATION
     Route: 048
     Dates: start: 20140318
  6. NOVAMIN (JAPAN) [Concomitant]
     Indication: PROPHYLAXIS
     Route: 048
     Dates: start: 20140318
  7. DICLOFENAC SODIUM. [Concomitant]
     Active Substance: DICLOFENAC SODIUM
     Indication: CANCER PAIN
     Route: 054
     Dates: start: 20140313
  8. MAGMITT [Concomitant]
     Active Substance: MAGNESIUM OXIDE
     Indication: CONSTIPATION
     Route: 048
     Dates: start: 20140318
  9. OXYCONTIN [Concomitant]
     Active Substance: OXYCODONE HYDROCHLORIDE
     Indication: CANCER PAIN
     Route: 048
     Dates: start: 20140322
  10. HERCEPTIN [Suspect]
     Active Substance: TRASTUZUMAB
     Indication: BREAST CANCER RECURRENT
     Dosage: 368 MG
     Route: 041
     Dates: start: 20140326, end: 20140326
  11. OXYCONTIN [Concomitant]
     Active Substance: OXYCODONE HYDROCHLORIDE
     Indication: CANCER PAIN
     Route: 048
     Dates: start: 20140318, end: 20140321

REACTIONS (1)
  - Acute pulmonary oedema [Recovered/Resolved]

NARRATIVE: CASE EVENT DATE: 20140326
